FAERS Safety Report 9745769 (Version 1)
Quarter: 2013Q4

REPORT INFORMATION
  Report Type: Report from Study
  Country: US (occurrence: US)
  Receive Date: 20131211
  Receipt Date: 20131211
  Transmission Date: 20140711
  Serious: Yes (Other)
  Sender: FDA-Public Use
  Company Number: US-B.I. PHARMACEUTICALS,INC./RIDGEFIELD-2013-BI-40589BI

PATIENT
  Sex: Female

DRUGS (16)
  1. GILOTRIF [Suspect]
     Indication: LUNG NEOPLASM MALIGNANT
     Dosage: 20 MG
     Route: 048
     Dates: start: 201309
  2. LOMOTIL [Concomitant]
  3. LOSARTAN-HCTZ [Concomitant]
     Dosage: DOSE PER APLLICATION 100-25
  4. PREDNISONE [Concomitant]
  5. DONEPEZIL HCL [Concomitant]
  6. PRAVASTATIN SODIUM [Concomitant]
  7. MIRTAZAPINE [Concomitant]
  8. PROMETHAZINE [Concomitant]
  9. DICYCLOMINE [Concomitant]
  10. ZOFRAN [Concomitant]
  11. LEVOTHYROXINE [Concomitant]
  12. NAMENDA [Concomitant]
  13. VERAPAMIL [Concomitant]
     Dosage: FORMULATION CAP PELLET
  14. LORTAB [Concomitant]
     Dosage: DOSE PER APLICATION 7.5-500
  15. LOPERAMIDE [Concomitant]
  16. EUCERIN CREAM [Concomitant]

REACTIONS (1)
  - Drug intolerance [Unknown]
